FAERS Safety Report 8066622-4 (Version None)
Quarter: 2012Q1

REPORT INFORMATION
  Report Type: 
  Country: None (occurrence: None)
  Receive Date: 20120124
  Receipt Date: 20120119
  Transmission Date: 20120608
  Serious: Yes (Disabling)
  Sender: FDA-Public Use
  Company Number: PHEH2011US012692

PATIENT
  Sex: Female
  Weight: 68.481 kg

DRUGS (4)
  1. PERCOCET [Concomitant]
     Indication: PAIN
     Dosage: THRICE PER WEEK
     Route: 048
  2. GILENYA [Suspect]
     Indication: MULTIPLE SCLEROSIS
     Dosage: 0.5 MG, QD
     Route: 048
     Dates: start: 20111223
  3. ZOLPIDEM [Concomitant]
     Indication: INSOMNIA
     Dosage: 3 TABLETS PER MONTH
     Dates: start: 20080101
  4. DROSPIRENONE AND ETHINYL ESTRADIOL [Concomitant]
     Indication: CONTRACEPTION
     Dosage: UNK UKN, UNK
     Route: 048
     Dates: start: 20110801

REACTIONS (2)
  - SOMNOLENCE [None]
  - FATIGUE [None]
